FAERS Safety Report 12774241 (Version 2)
Quarter: 2020Q3

REPORT INFORMATION
  Report Type: Spontaneous
  Country: NL (occurrence: NL)
  Receive Date: 20160923
  Receipt Date: 20200806
  Transmission Date: 20201102
  Serious: Yes (Hospitalization)
  Sender: FDA-Public Use
  Company Number: NL-TEVA-693422ACC

PATIENT
  Age: 57 Year
  Sex: Female
  Weight: 97 kg

DRUGS (8)
  1. SULFASALAZINE. [Suspect]
     Active Substance: SULFASALAZINE
     Indication: RHEUMATOID ARTHRITIS
     Dosage: 2 TIMES A DAY 4 PIECE (S), EXTRA INFO: 500MG
     Route: 048
     Dates: start: 20040101, end: 20160511
  2. METHOTREXATE (METHOTREXATE SODIUM) [Suspect]
     Active Substance: METHOTREXATE SODIUM
     Indication: RHEUMATOID ARTHRITIS
     Dosage: ADDITIONAL INFO: 25MG WEEKLY
     Route: 048
     Dates: start: 20040101, end: 20160511
  3. PLAQUENIL [Suspect]
     Active Substance: HYDROXYCHLOROQUINE SULFATE
     Indication: SYSTEMIC LUPUS ERYTHEMATOSUS
     Dosage: 200 MILLIGRAM DAILY;  ADDITIONAL INFO: 200MG, THERAPY END DATE : ASKED BUT UNKNOWN
     Route: 048
     Dates: start: 20060101
  4. ETANERCEPT [Suspect]
     Active Substance: ETANERCEPT
     Indication: RHEUMATOID ARTHRITIS
     Dosage: ADDITIONAL INFO: 50MG, THERAPY END DATE : ASKED BUT UNKNOWN
     Route: 058
     Dates: start: 20150827
  5. TRIAMTEREEN/HCT [Concomitant]
     Dosage: 1 DOSAGE FORMS DAILY;  ADDITIONAL INFO: 50/4, THERAPY END DATE : ASKED BUT UNKNOWN
     Route: 048
     Dates: start: 20150801
  6. BISOPROLOL [Concomitant]
     Active Substance: BISOPROLOL
     Dosage: 10 MILLIGRAM DAILY; ADDITIONAL INFO: 10MG, THERAPY END DATE : ASKED BUT UNKNOWN
     Route: 048
     Dates: start: 20100101
  7. PANTOZOL [Concomitant]
     Active Substance: PANTOPRAZOLE SODIUM
     Dosage: 40 MILLIGRAM DAILY; ADDITIONAL INFO: 40MG, THERAPY END DATE : ASKED BUT UNKNOWN
     Route: 048
     Dates: start: 20040101
  8. LISINOPRIL. [Concomitant]
     Active Substance: LISINOPRIL
     Dosage: 10 MILLIGRAM DAILY;  ADDITIONAL INFO: 10MG, THERAPY END DATE : ASKED BUT UNKNOWN
     Route: 048
     Dates: start: 20100101

REACTIONS (1)
  - Haemolytic anaemia [Not Recovered/Not Resolved]

NARRATIVE: CASE EVENT DATE: 20160411
